FAERS Safety Report 10267006 (Version 1)
Quarter: 2014Q2

REPORT INFORMATION
  Report Type: Spontaneous
  Country: US (occurrence: None)
  Receive Date: 20140625
  Receipt Date: 20140625
  Transmission Date: 20141212
  Serious: Yes (Other)
  Sender: FDA-Public Use
  Company Number: CM14-0039

PATIENT
  Sex: 0

DRUGS (1)
  1. LIDOCAINE HCL [Suspect]
     Indication: LARYNGOSCOPY
     Dates: start: 20140505

REACTIONS (3)
  - Device breakage [None]
  - Procedural complication [None]
  - Product container issue [None]
